FAERS Safety Report 9298587 (Version 1)
Quarter: 2013Q2

REPORT INFORMATION
  Report Type: Spontaneous
  Country: SV (occurrence: SV)
  Receive Date: 20130520
  Receipt Date: 20130520
  Transmission Date: 20140414
  Serious: Yes (Other)
  Sender: FDA-Public Use
  Company Number: SV-ASTRAZENECA-2013SE33071

PATIENT
  Age: 55 Year
  Sex: Female

DRUGS (2)
  1. BRILINTA [Suspect]
     Indication: ANTICOAGULANT THERAPY
     Route: 048
     Dates: start: 20121223, end: 20121223
  2. ASA [Concomitant]
     Indication: ANTICOAGULANT THERAPY
     Route: 048
     Dates: start: 20121223

REACTIONS (2)
  - Haemoglobin decreased [Unknown]
  - Haematoma [Unknown]
